FAERS Safety Report 4382996-X (Version None)
Quarter: 2004Q2

REPORT INFORMATION
  Report Type: 
  Country: None (occurrence: None)
  Receive Date: 20040528
  Receipt Date: 20030506
  Transmission Date: 20050107
  Serious: Yes (Hospitalization)
  Sender: FDA-Public Use
  Company Number: TAP2003Q01142

PATIENT
  Age: 36 Year
  Sex: Female
  Weight: 67.1324 kg

DRUGS (3)
  1. LUPRON DEPOT-3 [Suspect]
     Indication: ANAEMIA
     Dosage: 3.75 MG, 1 IN 1 M, INTRAMUSCULAR
     Route: 030
     Dates: start: 20030225, end: 20030501
  2. LUPRON DEPOT-3 [Suspect]
     Indication: HAEMORRHAGE
     Dosage: 3.75 MG, 1 IN 1 M, INTRAMUSCULAR
     Route: 030
     Dates: start: 20030225, end: 20030501
  3. LUPRON DEPOT-3 [Suspect]
     Indication: UTERINE LEIOMYOMA
     Dosage: 3.75 MG, 1 IN 1 M, INTRAMUSCULAR
     Route: 030
     Dates: start: 20030225, end: 20030501

REACTIONS (2)
  - ANAEMIA [None]
  - CONDITION AGGRAVATED [None]
